FAERS Safety Report 6103313-0 (Version None)
Quarter: 2009Q1

REPORT INFORMATION
  Report Type: 
  Country: None (occurrence: None)
  Receive Date: 20090305
  Receipt Date: 20090220
  Transmission Date: 20090719
  Serious: Yes (Life-Threatening)
  Sender: FDA-Public Use
  Company Number: JP-SANOFI-SYNTHELABO-A01200902154

PATIENT
  Sex: Female

DRUGS (4)
  1. FLUOROURACIL [Suspect]
     Indication: COLON CANCER
     Dosage: BOLUS THEN CONTINUOS INFUSION UNK
     Dates: start: 20090219, end: 20090219
  2. LEUCOVORIN CALCIUM [Suspect]
     Indication: COLON CANCER
     Dosage: UNK
     Route: 042
     Dates: start: 20090219, end: 20090219
  3. AVASTIN [Suspect]
     Indication: COLON CANCER
     Dosage: 4.2 MG/KG
     Route: 042
     Dates: start: 20090219, end: 20090219
  4. ELPLAT [Suspect]
     Indication: COLON CANCER
     Dosage: UNK
     Route: 042
     Dates: start: 20090219, end: 20090219

REACTIONS (1)
  - SHOCK [None]
